FAERS Safety Report 7101551-1 (Version None)
Quarter: 2010Q4

REPORT INFORMATION
  Report Type: 
  Country: None (occurrence: None)
  Receive Date: 20101115
  Receipt Date: 20101109
  Transmission Date: 20110411
  Serious: Yes (Other)
  Sender: FDA-Public Use
  Company Number: AU-PFIZER INC-2010145185

PATIENT
  Sex: Female

DRUGS (3)
  1. LYRICA [Suspect]
     Indication: NEURALGIA
     Dosage: 75MG
  2. LYRICA [Suspect]
     Dosage: 150MG
  3. LEVOTHYROXINE SODIUM [Concomitant]
     Dosage: UNK

REACTIONS (6)
  - ANXIETY [None]
  - DYSPNOEA [None]
  - GASTRIC DILATATION [None]
  - HYPERHIDROSIS [None]
  - HYPERVENTILATION [None]
  - OEDEMA PERIPHERAL [None]
